FAERS Safety Report 9074023 (Version 1)
Quarter: 2013Q1

REPORT INFORMATION
  Report Type: Report from Study
  Country: US (occurrence: US)
  Receive Date: 20130129
  Receipt Date: 20130129
  Transmission Date: 20140127
  Serious: No
  Sender: FDA-Public Use
  Company Number: US-ABBOTT-12P-163-0917418-00

PATIENT
  Sex: Female
  Weight: 99.88 kg

DRUGS (9)
  1. HUMIRA 40 MG/0.8 ML PEN [Suspect]
     Indication: RHEUMATOID ARTHRITIS
     Dates: start: 2007
  2. HUMIRA 40 MG/0.8 ML PEN [Suspect]
     Dates: start: 2009, end: 2011
  3. ALENDRONATE SODIUM [Suspect]
     Indication: OSTEOPOROSIS
     Dates: start: 200901, end: 201001
  4. ENBREL [Concomitant]
     Indication: RHEUMATOID ARTHRITIS
     Dates: start: 2011
  5. METHOTREXATE [Concomitant]
     Indication: RHEUMATOID ARTHRITIS
  6. FOLIC ACID [Concomitant]
     Indication: RHEUMATOID ARTHRITIS
  7. PREDNISONE [Concomitant]
     Indication: RHEUMATOID ARTHRITIS
  8. VITAMIN D [Concomitant]
     Indication: RHEUMATOID ARTHRITIS
  9. OXYGEN [Concomitant]
     Indication: CHRONIC OBSTRUCTIVE PULMONARY DISEASE
     Dosage: 24 HOURS A DAY

REACTIONS (1)
  - Rheumatoid arthritis [Recovering/Resolving]
